FAERS Safety Report 7346279-8 (Version None)
Quarter: 2011Q1

REPORT INFORMATION
  Report Type: 
  Country: None (occurrence: None)
  Receive Date: 20110311
  Receipt Date: 20110307
  Transmission Date: 20110831
  Serious: Yes (Other)
  Sender: FDA-Public Use
  Company Number: US-PFIZER INC-2011049894

PATIENT
  Sex: Female
  Weight: 62.585 kg

DRUGS (3)
  1. ZOLOFT [Concomitant]
     Indication: DEPRESSION
     Dosage: UNK
  2. CHANTIX [Suspect]
     Indication: SMOKING CESSATION THERAPY
     Dosage: 0.5 MG, DAILY
     Route: 048
     Dates: start: 20110218, end: 20110220
  3. SEROQUEL [Concomitant]
     Indication: DEPRESSION
     Dosage: UNK

REACTIONS (3)
  - ANXIETY [None]
  - NERVOUSNESS [None]
  - PANIC ATTACK [None]
